FAERS Safety Report 11633067 (Version 1)
Quarter: 2015Q4

REPORT INFORMATION
  Report Type: Spontaneous
  Country: US (occurrence: None)
  Receive Date: 20151014
  Receipt Date: 20151014
  Transmission Date: 20160304
  Serious: Yes (Disabling, Other)
  Sender: FDA-Public Use
  Company Number: None

PATIENT
  Age: 24 Year
  Sex: Female
  Weight: 45.36 kg

DRUGS (1)
  1. IMPLANON [Suspect]
     Active Substance: ETONOGESTREL

REACTIONS (14)
  - Irritable bowel syndrome [None]
  - Anaemia [None]
  - Seizure [None]
  - Feeling abnormal [None]
  - Adnexa uteri pain [None]
  - Palpitations [None]
  - Bone pain [None]
  - Withdrawal syndrome [None]
  - Haematochezia [None]
  - Hormone level abnormal [None]
  - Depression [None]
  - Ex-tobacco user [None]
  - Mood swings [None]
  - Haemorrhage [None]

NARRATIVE: CASE EVENT DATE: 20151012
